FAERS Safety Report 6448795-X (Version None)
Quarter: 2009Q4

REPORT INFORMATION
  Report Type: 
  Country: None (occurrence: None)
  Receive Date: 20091120
  Receipt Date: 20091112
  Transmission Date: 20100525
  Serious: Yes (Hospitalization)
  Sender: FDA-Public Use
  Company Number: PHHO2007NZ10229

PATIENT
  Sex: Male
  Weight: 85.4 kg

DRUGS (8)
  1. NO TREATMENT RECEIVED NOMED [Suspect]
     Indication: PROSTATE CANCER
     Dosage: NO TREATMENT
  2. APO-DICLO - SLOW RELEASE [Concomitant]
     Dosage: 75 MG, QD
     Route: 048
     Dates: start: 20031101, end: 20070615
  3. PARACETAMOL [Concomitant]
  4. CALCIUM CARBONATE [Concomitant]
     Indication: PROSTATE CANCER
  5. COLECALCIFEROL [Concomitant]
     Indication: PROSTATE CANCER
  6. OMEPRAZOLE [Concomitant]
  7. METFORMIN HCL [Concomitant]
  8. ZOMETA [Suspect]

REACTIONS (6)
  - DIARRHOEA [None]
  - GASTROENTERITIS VIRAL [None]
  - HYPOTENSION [None]
  - IRON DEFICIENCY ANAEMIA [None]
  - MELAENA [None]
  - VOMITING [None]
